FAERS Safety Report 17561648 (Version 1)
Quarter: 2020Q1

REPORT INFORMATION
  Report Type: Spontaneous
  Country: IT (occurrence: IT)
  Receive Date: 20200319
  Receipt Date: 20200319
  Transmission Date: 20200409
  Serious: Yes (Other)
  Sender: FDA-Public Use
  Company Number: IT-JNJFOC-20200314203

PATIENT
  Age: 34 Year
  Sex: Female

DRUGS (1)
  1. RISPERDAL [Suspect]
     Active Substance: RISPERIDONE
     Indication: PRODUCT USED FOR UNKNOWN INDICATION
     Dosage: 7 TABLETS ON 09-MAR-2020
     Route: 048

REACTIONS (2)
  - Drug abuse [Unknown]
  - Tachycardia [Unknown]

NARRATIVE: CASE EVENT DATE: 20200309
